FAERS Safety Report 11334822 (Version 1)
Quarter: 2015Q3

REPORT INFORMATION
  Report Type: Spontaneous
  Country: US (occurrence: None)
  Receive Date: 20150731
  Receipt Date: 20150731
  Transmission Date: 20151125
  Serious: No
  Sender: FDA-Public Use
  Company Number: None

PATIENT
  Age: 72 Year
  Sex: Female
  Weight: 66.68 kg

DRUGS (1)
  1. LEVOTHYROXINE 100MCG, 75MCG [Suspect]
     Active Substance: LEVOTHYROXINE
     Indication: HYPOTHYROIDISM
     Route: 048
     Dates: start: 20150603, end: 20150625

REACTIONS (4)
  - Dyspepsia [None]
  - Abdominal distension [None]
  - Product substitution issue [None]
  - Abdominal pain [None]

NARRATIVE: CASE EVENT DATE: 20150603
